FAERS Safety Report 20517530 (Version 1)
Quarter: 2022Q1

REPORT INFORMATION
  Report Type: Spontaneous
  Country: US (occurrence: None)
  Receive Date: 20220224
  Receipt Date: 20220224
  Transmission Date: 20220424
  Serious: Yes (Hospitalization)
  Sender: FDA-Public Use
  Company Number: None

PATIENT
  Age: 78 Year
  Sex: Male

DRUGS (1)
  1. APIXABAN [Suspect]
     Active Substance: APIXABAN
     Indication: Atrial fibrillation
     Dosage: 5 MG BID PO
     Route: 048
     Dates: end: 20211229

REACTIONS (7)
  - Dieulafoy^s vascular malformation [None]
  - Acute respiratory distress syndrome [None]
  - Pneumonia aspiration [None]
  - Pneumonitis [None]
  - Pulseless electrical activity [None]
  - Haemorrhage [None]
  - Bradycardia [None]

NARRATIVE: CASE EVENT DATE: 20211229
